FAERS Safety Report 7804596-9 (Version None)
Quarter: 2011Q4

REPORT INFORMATION
  Report Type: 
  Country: None (occurrence: None)
  Receive Date: 20111010
  Receipt Date: 20110928
  Transmission Date: 20120403
  Serious: Yes (Other)
  Sender: FDA-Public Use
  Company Number: ES-UCBSA-041859

PATIENT
  Age: 53 Year
  Sex: Male

DRUGS (5)
  1. NO CONCOMITANT MEDICATION [Concomitant]
  2. CIMZIA [Suspect]
     Dosage: ONE OF THE BATCH NUMBER WAS 35366
     Route: 058
     Dates: start: 20110131, end: 20110314
  3. CIMZIA [Suspect]
     Dosage: ONE OF THE BATCH NUMBER WAS 35366
     Route: 058
     Dates: start: 20110131, end: 20110314
  4. CIMZIA [Suspect]
     Indication: RHEUMATOID ARTHRITIS
     Route: 058
     Dates: start: 20110328, end: 20110627
  5. CIMZIA [Suspect]
     Indication: PSORIATIC ARTHROPATHY
     Route: 058
     Dates: start: 20110328, end: 20110627

REACTIONS (1)
  - LUPUS-LIKE SYNDROME [None]
